FAERS Safety Report 16118466 (Version 1)
Quarter: 2019Q1

REPORT INFORMATION
  Report Type: Spontaneous
  Country: KR (occurrence: KR)
  Receive Date: 20190326
  Receipt Date: 20190326
  Transmission Date: 20190418
  Serious: Yes (Death, Hospitalization, Other)
  Sender: FDA-Public Use
  Company Number: KR-009507513-1903KOR009521

PATIENT
  Sex: Female

DRUGS (6)
  1. HEPARIN SODIUM. [Concomitant]
     Active Substance: HEPARIN SODIUM
     Dosage: QUANTITY 3, DAYS 1
     Dates: start: 20181114
  2. TAZOPERAN [Concomitant]
     Dosage: QUANTITY: 5; DAYS 1
     Dates: start: 20181115
  3. MEROPEN [Concomitant]
     Active Substance: MEROPENEM
     Dosage: QUANTITY 2, 5 DAYS
     Dates: start: 20181114, end: 20190213
  4. KEYTRUDA [Suspect]
     Active Substance: PEMBROLIZUMAB
     Indication: ANGIOCENTRIC LYMPHOMA
     Dosage: QUANTITY: 1; DAYS: 4
     Dates: start: 20181115, end: 20190123
  5. TAZOPERAN [Concomitant]
     Dosage: QUANTITY 1, DAYS 1
     Dates: start: 20181114
  6. HEPARIN SODIUM. [Concomitant]
     Active Substance: HEPARIN SODIUM
     Dosage: QUANTITY 4, DAYS 1
     Dates: start: 20181115

REACTIONS (5)
  - Haemorrhage [Fatal]
  - Malignant neoplasm progression [Fatal]
  - Product use in unapproved indication [Unknown]
  - Cerebrospinal fluid reservoir placement [Unknown]
  - Adverse event [Unknown]

NARRATIVE: CASE EVENT DATE: 20190124
